FAERS Safety Report 14388363 (Version 2)
Quarter: 2018Q4

REPORT INFORMATION
  Report Type: Spontaneous
  Country: US (occurrence: US)
  Receive Date: 20180115
  Receipt Date: 20181116
  Transmission Date: 20190204
  Serious: Yes (Other)
  Sender: FDA-Public Use
  Company Number: US-SA-2017SA203821

PATIENT
  Age: 65 Year
  Sex: Female
  Weight: 56 kg

DRUGS (4)
  1. PARAPLATIN [Concomitant]
     Active Substance: CARBOPLATIN
  2. TAXOTERE [Suspect]
     Active Substance: DOCETAXEL
     Indication: BREAST CANCER FEMALE
     Dosage: UNK UNK,Q3W
     Route: 042
     Dates: start: 20081124, end: 20081124
  3. TAXOTERE [Suspect]
     Active Substance: DOCETAXEL
     Dosage: UNK UNK,Q3W
     Route: 042
     Dates: start: 20090402, end: 20090402
  4. HERCEPTIN [Concomitant]
     Active Substance: TRASTUZUMAB

REACTIONS (6)
  - Anxiety [Unknown]
  - Alopecia [Not Recovered/Not Resolved]
  - Psychological trauma [Unknown]
  - Pain [Unknown]
  - Emotional distress [Unknown]
  - Impaired quality of life [Unknown]

NARRATIVE: CASE EVENT DATE: 20081201
